FAERS Safety Report 18557300 (Version 1)
Quarter: 2020Q4

REPORT INFORMATION
  Report Type: Report from Study
  Country: None (occurrence: US)
  Receive Date: 20201129
  Receipt Date: 20201129
  Transmission Date: 20210114
  Serious: Yes (Other)
  Sender: FDA-Public Use
  Company Number: US-ABBVIE-20K-163-3544656-00

PATIENT
  Age: 52 Year
  Sex: Male
  Weight: 97.16 kg

DRUGS (4)
  1. MELOXICAM. [Concomitant]
     Active Substance: MELOXICAM
     Indication: PAIN
  2. HUMIRA [Suspect]
     Active Substance: ADALIMUMAB
     Indication: PSORIATIC ARTHROPATHY
     Route: 058
     Dates: start: 2004
  3. HUMIRA [Suspect]
     Active Substance: ADALIMUMAB
     Indication: PSORIATIC ARTHROPATHY
     Route: 058
     Dates: start: 2013, end: 20201027
  4. METHOTREXATE. [Concomitant]
     Active Substance: METHOTREXATE
     Indication: PRODUCT USED FOR UNKNOWN INDICATION

REACTIONS (5)
  - Immune system disorder [Not Recovered/Not Resolved]
  - Arthritis infective [Recovered/Resolved]
  - Factor V Leiden mutation [Recovered/Resolved]
  - Cartilage injury [Recovering/Resolving]
  - Lower limb fracture [Recovered/Resolved]

NARRATIVE: CASE EVENT DATE: 201212
